FAERS Safety Report 9644300 (Version 1)
Quarter: 2013Q4

REPORT INFORMATION
  Report Type: Report from Study
  Country: BR (occurrence: BR)
  Receive Date: 20131025
  Receipt Date: 20131025
  Transmission Date: 20140711
  Serious: Yes (Other)
  Sender: FDA-Public Use
  Company Number: BR-ROCHE-1293053

PATIENT
  Sex: Male
  Weight: 80 kg

DRUGS (4)
  1. XOLAIR [Suspect]
     Indication: ASTHMA
     Route: 058
  2. XOLAIR [Suspect]
     Indication: BRONCHITIS
     Route: 058
     Dates: start: 20131004
  3. FORMOTEROL [Concomitant]
  4. SERETIDE [Concomitant]

REACTIONS (2)
  - Pelvic fracture [Recovering/Resolving]
  - Accident [Unknown]
